FAERS Safety Report 10552562 (Version 1)
Quarter: 2014Q4

REPORT INFORMATION
  Report Type: Spontaneous
  Country: US (occurrence: US)
  Receive Date: 20141029
  Receipt Date: 20141029
  Transmission Date: 20150529
  Serious: Yes (Hospitalization)
  Sender: FDA-Public Use
  Company Number: US-AMGEN-USASP2014082064

PATIENT
  Age: 79 Year
  Sex: Male

DRUGS (4)
  1. CALCITROL                          /00514701/ [Concomitant]
     Dosage: 0.25 MG, QD
  2. VITAMIN D3 [Concomitant]
     Active Substance: CHOLECALCIFEROL
     Dosage: 1000 UNIT, QD
  3. PROLIA [Suspect]
     Active Substance: DENOSUMAB
     Indication: CHRONIC KIDNEY DISEASE
     Dosage: 60 MG, UNK
     Route: 058
  4. CALCIUM CARBONATE. [Concomitant]
     Active Substance: CALCIUM CARBONATE
     Dosage: 750 MG, BID

REACTIONS (8)
  - Tremor [Unknown]
  - Irritability [Unknown]
  - Paraesthesia [Unknown]
  - Pyrexia [Unknown]
  - Hypocalcaemia [Recovered/Resolved]
  - Malaise [Unknown]
  - Myalgia [Unknown]
  - Muscular weakness [Unknown]
